FAERS Safety Report 5303307-9 (Version None)
Quarter: 2007Q2

REPORT INFORMATION
  Report Type: 
  Country: None (occurrence: None)
  Receive Date: 20070420
  Receipt Date: 20070413
  Transmission Date: 20071010
  Serious: Yes (Other)
  Sender: FDA-Public Use
  Company Number: 6941

PATIENT
  Age: 72 Year
  Sex: Male

DRUGS (4)
  1. HYCAMTIN [Suspect]
     Indication: DRUG USE FOR UNKNOWN INDICATION
     Dosage: 1.375MG PER DAY
     Route: 065
     Dates: start: 20070115, end: 20070119
  2. NAUZELIN [Concomitant]
  3. HUSCODE [Concomitant]
  4. ONDANSETRON [Concomitant]

REACTIONS (2)
  - CONDITION AGGRAVATED [None]
  - INTERSTITIAL LUNG DISEASE [None]
